FAERS Safety Report 5758997-3 (Version None)
Quarter: 2008Q2

REPORT INFORMATION
  Report Type: 
  Country: None (occurrence: None)
  Receive Date: 20080604
  Receipt Date: 20080527
  Transmission Date: 20081010
  Serious: Yes (Hospitalization, Other)
  Sender: FDA-Public Use
  Company Number: GB-ABBOTT-08P-167-0453454-00

PATIENT
  Age: 69 Year
  Sex: Male

DRUGS (8)
  1. CLARITHROMYCIN [Suspect]
     Indication: MYCOBACTERIUM AVIUM COMPLEX INFECTION
     Dosage: NOT REPORTED
     Dates: start: 20030501
  2. RIFAMPICIN [Interacting]
     Indication: MYCOBACTERIUM AVIUM COMPLEX INFECTION
     Dosage: NOT REPORTED
     Dates: start: 20030501
  3. ETHAMBUTOL HYDROCHLORIDE [Interacting]
     Indication: MYCOBACTERIUM AVIUM COMPLEX INFECTION
     Dosage: NOT REPORTED
     Dates: start: 20030501
  4. CLOPIDOGREL [Interacting]
     Indication: THROMBOSIS PROPHYLAXIS
     Route: 042
  5. CLOPIDOGREL [Interacting]
  6. CLOPIDOGREL [Interacting]
  7. ABCIXIMAB [Concomitant]
     Indication: DRUG USE FOR UNKNOWN INDICATION
     Route: 042
  8. ASPIRIN [Concomitant]
     Indication: THROMBOSIS PROPHYLAXIS

REACTIONS (3)
  - ACUTE MYOCARDIAL INFARCTION [None]
  - DRUG INTERACTION [None]
  - DRUG RESISTANCE [None]
